FAERS Safety Report 11204610 (Version 4)
Quarter: 2016Q2

REPORT INFORMATION
  Report Type: Spontaneous
  Country: CA (occurrence: CA)
  Receive Date: 20150622
  Receipt Date: 20160411
  Transmission Date: 20160815
  Serious: Yes (Other)
  Sender: FDA-Public Use
  Company Number: CA-ROCHE-1596807

PATIENT
  Age: 35 Year
  Sex: Female
  Weight: 103.6 kg

DRUGS (8)
  1. XOLAIR [Suspect]
     Active Substance: OMALIZUMAB
     Route: 058
     Dates: start: 20160322
  2. XOLAIR [Suspect]
     Active Substance: OMALIZUMAB
     Indication: ASTHMA
     Route: 058
     Dates: start: 20120116
  3. XOLAIR [Suspect]
     Active Substance: OMALIZUMAB
     Route: 058
     Dates: start: 20160405
  4. PREDNISONE. [Concomitant]
     Active Substance: PREDNISONE
  5. VENTOLIN [Concomitant]
     Active Substance: ALBUTEROL SULFATE
  6. SYMBICORT [Concomitant]
     Active Substance: BUDESONIDE\FORMOTEROL FUMARATE DIHYDRATE
  7. FLOVENT [Concomitant]
     Active Substance: FLUTICASONE PROPIONATE
  8. SINGULAIR [Concomitant]
     Active Substance: MONTELUKAST SODIUM

REACTIONS (8)
  - Middle insomnia [Unknown]
  - Dyspnoea [Unknown]
  - Anxiety [Unknown]
  - Bronchitis [Unknown]
  - Pneumonia [Unknown]
  - Anaphylactic shock [Unknown]
  - Hypersensitivity [Unknown]
  - Weight increased [Unknown]

NARRATIVE: CASE EVENT DATE: 201505
